FAERS Safety Report 16719587 (Version 3)
Quarter: 2019Q3

REPORT INFORMATION
  Report Type: Report from Study
  Country: US (occurrence: US)
  Receive Date: 20190820
  Receipt Date: 20190926
  Transmission Date: 20191005
  Serious: Yes (Other)
  Sender: FDA-Public Use
  Company Number: US-TESAROUBC-2019-TSO02380-US

PATIENT
  Age: 71 Year
  Sex: Female

DRUGS (2)
  1. NIRAPARIB [Suspect]
     Active Substance: NIRAPARIB
     Dosage: 200 MG, QD PM WITHOUT FOOD
     Dates: start: 20190624
  2. COQ 10 [Concomitant]
     Active Substance: UBIDECARENONE
     Dosage: UNK

REACTIONS (16)
  - Hypertension [Recovering/Resolving]
  - Glucose tolerance impaired [Unknown]
  - Tremor [Unknown]
  - Blood magnesium decreased [Recovering/Resolving]
  - Alopecia [Not Recovered/Not Resolved]
  - Nausea [Recovered/Resolved]
  - Fatigue [Not Recovered/Not Resolved]
  - Vomiting [Recovered/Resolved]
  - Blood potassium decreased [Recovered/Resolved]
  - Back pain [Recovered/Resolved]
  - Dry skin [Recovering/Resolving]
  - Anaemia [Unknown]
  - Blood test abnormal [Unknown]
  - Dehydration [Unknown]
  - Dizziness [Recovered/Resolved]
  - Asthenia [Not Recovered/Not Resolved]

NARRATIVE: CASE EVENT DATE: 20190624
